FAERS Safety Report 4830621-3 (Version None)
Quarter: 2005Q4

REPORT INFORMATION
  Report Type: 
  Country: None (occurrence: None)
  Receive Date: 20051114
  Receipt Date: 20051101
  Transmission Date: 20060501
  Serious: Yes (Hospitalization)
  Sender: FDA-Public Use
  Company Number: 2005151355

PATIENT
  Age: 38 Year
  Sex: Male

DRUGS (6)
  1. PREDNISONE [Suspect]
     Indication: LUNG TRANSPLANT
  2. METHYLPREDNISOLONE SODIUM SUCCINATE POWDER, STERILE (METHYLPERDNISOLON [Suspect]
     Indication: LUNG TRANSPLANT
     Dosage: INTRAVENOUS
     Route: 042
  3. TACROLIMUS (TACROLIMUS) [Suspect]
     Indication: LUNG TRANSPLANT
  4. MYCOPHENOLATE MOFETIL (MYCOPHENOLATE MOFETIL) [Suspect]
     Indication: LUNG TRANSPLANT
  5. AZATHIOPRINE [Suspect]
     Indication: LUNG TRANSPLANT
  6. CYCLOSPORINE [Suspect]
     Indication: LUNG TRANSPLANT

REACTIONS (13)
  - ALVEOLITIS ALLERGIC [None]
  - BRONCHOALVEOLAR LAVAGE ABNORMAL [None]
  - EPSTEIN-BARR VIRUS INFECTION [None]
  - GENERAL PHYSICAL HEALTH DETERIORATION [None]
  - LUNG CONSOLIDATION [None]
  - LUNG DISORDER [None]
  - LUNG INFECTION [None]
  - LUNG TRANSPLANT REJECTION [None]
  - PERICARDIAL DISEASE [None]
  - PLEURAL FIBROSIS [None]
  - PULMONARY FIBROSIS [None]
  - PULMONARY SEPSIS [None]
  - THERAPY NON-RESPONDER [None]
